FAERS Safety Report 9780003 (Version 4)
Quarter: 2014Q2

REPORT INFORMATION
  Report Type: Spontaneous
  Country: US (occurrence: US)
  Receive Date: 20131223
  Receipt Date: 20140604
  Transmission Date: 20141212
  Serious: Yes (Death, Hospitalization)
  Sender: FDA-Public Use
  Company Number: US-GLAXOSMITHKLINE-A1054509A

PATIENT
  Age: 75 Year
  Sex: Male

DRUGS (6)
  1. VOTRIENT [Suspect]
     Indication: SARCOMA
     Dosage: 200MG FOUR TIMES PER DAY
     Route: 048
  2. METOPROLOL [Concomitant]
  3. TOPROL [Concomitant]
  4. LISINOPRIL [Concomitant]
  5. METFORMIN [Concomitant]
  6. GLYBURIDE [Concomitant]

REACTIONS (4)
  - Abdominal cavity drainage [Fatal]
  - Ascites [Unknown]
  - Dehydration [Unknown]
  - Malaise [Unknown]
